FAERS Safety Report 26112624 (Version 1)
Quarter: 2025Q4

REPORT INFORMATION
  Report Type: Spontaneous
  Country: US (occurrence: US)
  Receive Date: 20251202
  Receipt Date: 20251202
  Transmission Date: 20260117
  Serious: No
  Sender: PHARMACOSMOS A/S
  Company Number: US-NEBO-712755

PATIENT

DRUGS (4)
  1. ETOPOSIDE [Concomitant]
     Active Substance: ETOPOSIDE
  2. CARBOPLATIN [Concomitant]
     Active Substance: CARBOPLATIN
  3. COSELA [Suspect]
     Active Substance: TRILACICLIB DIHYDROCHLORIDE
     Indication: Small cell lung cancer extensive stage
     Dates: start: 20251030, end: 20251030
  4. COSELA [Suspect]
     Active Substance: TRILACICLIB DIHYDROCHLORIDE
     Indication: Small cell lung cancer extensive stage
     Dates: start: 20251030, end: 20251030

REACTIONS (3)
  - Pyrexia [Unknown]
  - Infusion site erythema [Unknown]
  - Skin warm [Unknown]

NARRATIVE: CASE EVENT DATE: 20251001
